FAERS Safety Report 15300265 (Version 1)
Quarter: 2018Q3

REPORT INFORMATION
  Report Type: Spontaneous
  Country: QA (occurrence: QA)
  Receive Date: 20180821
  Receipt Date: 20180821
  Transmission Date: 20181010
  Serious: Yes (Death, Hospitalization, Other)
  Sender: FDA-Public Use
  Company Number: QA-ALKEM LABORATORIES LIMITED-QA-ALKEM-2018-06596

PATIENT
  Age: 42 Year
  Sex: Male

DRUGS (2)
  1. ISONIAZID. [Suspect]
     Active Substance: ISONIAZID
     Indication: LATENT TUBERCULOSIS
     Dosage: 150 MG, QD
     Route: 065
     Dates: start: 20110211
  2. RIFAMPICIN [Suspect]
     Active Substance: RIFAMPIN
     Indication: LATENT TUBERCULOSIS
     Dosage: 450 MG, QD
     Route: 065
     Dates: start: 20110211

REACTIONS (2)
  - Hepatitis fulminant [Fatal]
  - Coma [Fatal]
